FAERS Safety Report 5761549-2 (Version None)
Quarter: 2008Q2

REPORT INFORMATION
  Report Type: 
  Country: None (occurrence: None)
  Receive Date: 20080606
  Receipt Date: 20080529
  Transmission Date: 20081010
  Serious: Yes (Hospitalization, Other)
  Sender: FDA-Public Use
  Company Number: TR-ABBOTT-08P-161-0454117-00

PATIENT
  Age: 30 Year
  Sex: Female
  Weight: 55 kg

DRUGS (2)
  1. LUCRIN DEPOT 11.25 MG [Suspect]
     Indication: BREAST CANCER
     Route: 030
     Dates: start: 20080301
  2. TRASTUZUMAB [Concomitant]
     Indication: BREAST CANCER

REACTIONS (2)
  - DRUG INEFFECTIVE [None]
  - MENSTRUATION IRREGULAR [None]
